FAERS Safety Report 25034179 (Version 2)
Quarter: 2025Q1

REPORT INFORMATION
  Report Type: Spontaneous
  Country: US (occurrence: US)
  Receive Date: 20250304
  Receipt Date: 20250320
  Transmission Date: 20250409
  Serious: No
  Sender: TEVA
  Company Number: US-TEVA-VS-3299481

PATIENT
  Age: 41 Year
  Sex: Female

DRUGS (1)
  1. AUSTEDO XR [Suspect]
     Active Substance: DEUTETRABENAZINE
     Indication: Huntington^s disease
     Route: 065
     Dates: start: 20250129

REACTIONS (4)
  - Drug ineffective [Unknown]
  - Agitation [Unknown]
  - Anger [Unknown]
  - Laziness [Unknown]

NARRATIVE: CASE EVENT DATE: 20250101
